FAERS Safety Report 24327210 (Version 1)
Quarter: 2024Q3

REPORT INFORMATION
  Report Type: Spontaneous
  Country: US (occurrence: None)
  Receive Date: 20240916
  Receipt Date: 20240916
  Transmission Date: 20241017
  Serious: Yes (Hospitalization)
  Sender: Public
  Company Number: None

PATIENT
  Age: 58 Year
  Sex: Female
  Weight: 95.25 kg

DRUGS (4)
  1. WINREVAIR [Suspect]
     Active Substance: SOTATERCEPT-CSRK
     Indication: Pulmonary arterial hypertension
     Dosage: 1.4 ML EVDRY 3 WEEKS SUBCUTANEOUS ?
     Route: 058
     Dates: start: 202407
  2. MINIMED SILHOUETTE INF SET [Concomitant]
  3. C-TREPROSTINIL (2.5ML)RM(PAP) [Concomitant]
  4. OPSUMIT [Concomitant]

REACTIONS (1)
  - Dyspnoea [None]

NARRATIVE: CASE EVENT DATE: 20240914
